FAERS Safety Report 4673752-3 (Version None)
Quarter: 2005Q2

REPORT INFORMATION
  Report Type: 
  Country: None (occurrence: None)
  Receive Date: 20050524
  Receipt Date: 20050513
  Transmission Date: 20051028
  Serious: Yes (Hospitalization)
  Sender: FDA-Public Use
  Company Number: PTWYE667416MAY05

PATIENT
  Age: 56 Year
  Sex: Female

DRUGS (11)
  1. TAZOBAC (PIPERACILLIN/TAZOBACTAM, INJECTION) [Suspect]
     Indication: UROSEPSIS
     Dosage: 9 G 1X PER 1 DAY INTRAVENOUS
     Route: 042
     Dates: start: 20050413, end: 20050419
  2. COLCHICINE (COLCHICINE) [Concomitant]
  3. DIOVAN HCT [Concomitant]
  4. ISOSORBIDE DINITRATE [Concomitant]
  5. TRIMETAZIDINE DIHYDROCHLORIDE [Concomitant]
  6. ACETYLCYSTEINE [Concomitant]
  7. AZITHROMYCIN [Concomitant]
  8. OMEPRAZOLE SODIUM [Concomitant]
  9. LORATADINE [Concomitant]
  10. BUDESONIDE [Concomitant]
  11. SODIUM BICARBONATE [Concomitant]

REACTIONS (5)
  - ALANINE AMINOTRANSFERASE INCREASED [None]
  - ASPARTATE AMINOTRANSFERASE INCREASED [None]
  - BLOOD ALKALINE PHOSPHATASE INCREASED [None]
  - GAMMA-GLUTAMYLTRANSFERASE INCREASED [None]
  - HEPATOTOXICITY [None]
